FAERS Safety Report 8354235-6 (Version None)
Quarter: 2012Q2

REPORT INFORMATION
  Report Type: 
  Country: None (occurrence: None)
  Receive Date: 20120511
  Receipt Date: 20120504
  Transmission Date: 20120825
  Serious: Yes (Death, Other)
  Sender: FDA-Public Use
  Company Number: AU-JNJFOC-20120509164

PATIENT
  Age: 78 Year
  Sex: Male

DRUGS (4)
  1. REOPRO [Suspect]
     Indication: ACUTE CORONARY SYNDROME
     Route: 042
  2. CLOPIDOGREL [Concomitant]
     Route: 065
  3. ASPIRIN [Concomitant]
     Route: 065
  4. REOPRO [Suspect]
     Indication: PERCUTANEOUS CORONARY INTERVENTION
     Route: 042

REACTIONS (3)
  - COMPLICATION OF DEVICE INSERTION [None]
  - ATRIOVENTRICULAR BLOCK [None]
  - MYOCARDIAL INFARCTION [None]
